FAERS Safety Report 5367934-5 (Version None)
Quarter: 2007Q2

REPORT INFORMATION
  Report Type: 
  Country: None (occurrence: None)
  Receive Date: 20070622
  Receipt Date: 20070615
  Transmission Date: 20071010
  Serious: Yes (Other)
  Sender: FDA-Public Use
  Company Number: US-ELI_LILLY_AND_COMPANY-US200706003598

PATIENT
  Age: 16 Year
  Sex: Male

DRUGS (3)
  1. STRATTERA [Suspect]
     Indication: ATTENTION DEFICIT/HYPERACTIVITY DISORDER
     Dosage: 60 MG, DAILY (1/D)
     Route: 048
  2. CLONIDINE [Concomitant]
  3. HYDROXYZINE HYDROCHLORIDE [Concomitant]

REACTIONS (3)
  - AGGRESSION [None]
  - DYSPHAGIA [None]
  - JAW OPERATION [None]
